FAERS Safety Report 16293664 (Version 1)
Quarter: 2019Q2

REPORT INFORMATION
  Report Type: Spontaneous
  Country: DE (occurrence: DE)
  Receive Date: 20190509
  Receipt Date: 20190509
  Transmission Date: 20190711
  Serious: Yes (Other)
  Sender: FDA-Public Use
  Company Number: DE-MYLANLABS-2019M1044252

PATIENT
  Age: 30 Year
  Sex: Male

DRUGS (1)
  1. LEPONEX [Suspect]
     Active Substance: CLOZAPINE
     Indication: SCHIZOPHRENIA
     Dosage: 500 TO 600MG/DAY
     Route: 048
     Dates: start: 2000

REACTIONS (2)
  - Obsessive-compulsive disorder [Unknown]
  - Obsessive thoughts [Unknown]
